FAERS Safety Report 4930540-8 (Version None)
Quarter: 2006Q1

REPORT INFORMATION
  Report Type: 
  Country: None (occurrence: None)
  Receive Date: 20060302
  Receipt Date: 20051114
  Transmission Date: 20060701
  Serious: Yes (Hospitalization)
  Sender: FDA-Public Use
  Company Number: US-MERCK-0511USA02269

PATIENT
  Age: 71 Year
  Sex: Female
  Weight: 61 kg

DRUGS (17)
  1. VIOXX [Suspect]
     Indication: ARTHRALGIA
     Route: 048
     Dates: start: 20040518, end: 20040928
  2. VIOXX [Suspect]
     Indication: ARTHRITIS
     Route: 048
     Dates: start: 20020325, end: 20030721
  3. VIOXX [Suspect]
     Route: 048
     Dates: start: 20030721, end: 20031203
  4. VIOXX [Suspect]
     Route: 048
     Dates: start: 20031203, end: 20040518
  5. VIOXX [Suspect]
     Route: 048
     Dates: start: 20020325, end: 20030721
  6. VIOXX [Suspect]
     Route: 048
     Dates: start: 20030721, end: 20031203
  7. VIOXX [Suspect]
     Route: 048
     Dates: start: 20031203, end: 20040518
  8. SYNTHROID [Concomitant]
     Route: 065
  9. PLAVIX [Concomitant]
     Route: 065
  10. LISINOPRIL [Concomitant]
     Route: 065
  11. DELTASONE [Concomitant]
     Route: 065
  12. ACIPHEX [Concomitant]
     Route: 065
  13. NORVASC [Concomitant]
     Route: 065
  14. FUROSEMIDE [Concomitant]
     Route: 065
  15. FLONASE [Concomitant]
     Route: 055
  16. ALBUTEROL [Concomitant]
     Route: 065
  17. VIOXX [Suspect]
     Route: 048
     Dates: start: 20040518, end: 20040928

REACTIONS (13)
  - ATRIOVENTRICULAR BLOCK SECOND DEGREE [None]
  - BACK PAIN [None]
  - CORONARY ARTERY DISEASE [None]
  - COUGH [None]
  - GASTROENTERITIS VIRAL [None]
  - HEART RATE IRREGULAR [None]
  - HYPERTENSION [None]
  - HYPOTHYROIDISM [None]
  - MITRAL VALVE INCOMPETENCE [None]
  - TACHYCARDIA [None]
  - TRANSIENT ISCHAEMIC ATTACK [None]
  - URINARY TRACT INFECTION [None]
  - VENTRICULAR EXTRASYSTOLES [None]
